FAERS Safety Report 18720973 (Version 1)
Quarter: 2021Q1

REPORT INFORMATION
  Report Type: Spontaneous
  Country: US (occurrence: US)
  Receive Date: 20210108
  Receipt Date: 20210108
  Transmission Date: 20210419
  Serious: No
  Sender: FDA-Public Use
  Company Number: US-BRECKENRIDGE PHARMACEUTICAL, INC.-2104150

PATIENT
  Age: 58 Year
  Sex: Male
  Weight: 118.18 kg

DRUGS (1)
  1. ALPRAZOLAM. [Suspect]
     Active Substance: ALPRAZOLAM
     Indication: ANXIETY DISORDER
     Route: 048

REACTIONS (6)
  - Hallucination [None]
  - Memory impairment [None]
  - Malaise [None]
  - Nightmare [None]
  - Drug withdrawal syndrome [None]
  - Therapeutic product effect incomplete [None]
